FAERS Safety Report 8037466-4 (Version None)
Quarter: 2012Q1

REPORT INFORMATION
  Report Type: 
  Country: None (occurrence: None)
  Receive Date: 20120106
  Receipt Date: 20111221
  Transmission Date: 20120608
  Serious: Yes (Hospitalization)
  Sender: FDA-Public Use
  Company Number: TCI2011A06670

PATIENT
  Age: 69 Year
  Sex: Male

DRUGS (5)
  1. LIVALO [Concomitant]
  2. PLAVIX [Concomitant]
  3. ACTOS [Suspect]
     Indication: DIABETES MELLITUS
     Dosage: 15 MG (15 MG, 1 IN 1 D) ORAL
     Route: 048
     Dates: start: 20060509, end: 20110808
  4. GLACTIVE (SITAGLIPTIN PHOSPHATE) [Concomitant]
  5. LOSARTAN POTASSIUM [Concomitant]

REACTIONS (1)
  - BLADDER CANCER [None]
